FAERS Safety Report 5406153-0 (Version None)
Quarter: 2007Q3

REPORT INFORMATION
  Report Type: 
  Country: None (occurrence: None)
  Receive Date: 20070802
  Receipt Date: 20070802
  Transmission Date: 20080115
  Serious: No
  Sender: FDA-Public Use
  Company Number: None

PATIENT
  Age: 30 Year
  Sex: Female
  Weight: 53.0709 kg

DRUGS (3)
  1. EFFEXOR XR [Suspect]
     Indication: ANGER
     Dosage: 3 PILLS DAILY PO
     Route: 048
  2. EFFEXOR XR [Suspect]
     Indication: ANXIETY
     Dosage: 3 PILLS DAILY PO
     Route: 048
  3. EFFEXOR XR [Suspect]
     Indication: DEPRESSION
     Dosage: 3 PILLS DAILY PO
     Route: 048

REACTIONS (4)
  - DRUG DOSE OMISSION [None]
  - FEAR [None]
  - HYPERHIDROSIS [None]
  - NIGHTMARE [None]
